FAERS Safety Report 9987548 (Version 2)
Quarter: 2014Q2

REPORT INFORMATION
  Report Type: Spontaneous
  Country: US (occurrence: US)
  Receive Date: 20140307
  Receipt Date: 20140501
  Transmission Date: 20141212
  Serious: No
  Sender: FDA-Public Use
  Company Number: US-AMGEN-USASP2014012949

PATIENT
  Age: 66 Year
  Sex: Male

DRUGS (1)
  1. ENBREL [Suspect]
     Indication: RHEUMATOID ARTHRITIS
     Dosage: 50 MG, QWK
     Route: 065
     Dates: start: 19981230

REACTIONS (5)
  - Sensitivity of teeth [Recovered/Resolved]
  - Gingival pain [Recovered/Resolved]
  - Gingival swelling [Recovered/Resolved]
  - Tooth extraction [Unknown]
  - Gingivitis [Not Recovered/Not Resolved]
